FAERS Safety Report 8301357-1 (Version None)
Quarter: 2012Q2

REPORT INFORMATION
  Report Type: 
  Country: None (occurrence: None)
  Receive Date: 20120420
  Receipt Date: 20120410
  Transmission Date: 20120825
  Serious: Yes (Hospitalization, Other)
  Sender: FDA-Public Use
  Company Number: US-AMGEN-USACT2012024619

PATIENT
  Age: 46 Year
  Sex: Female
  Weight: 77.1 kg

DRUGS (4)
  1. DOCETAXEL [Concomitant]
     Dosage: 75 MG/M2, UNK
     Route: 042
     Dates: start: 20110923
  2. GEMCITABINE [Concomitant]
     Dosage: 900 MG/M2, UNK
     Route: 042
     Dates: start: 20110923
  3. PEGFILGRASTIM [Suspect]
     Indication: UTERINE LEIOMYOSARCOMA
     Dosage: 6 MG, UNK
     Route: 058
     Dates: start: 20110923
  4. BEVACIZUMAB [Concomitant]
     Dosage: UNK
     Route: 042
     Dates: start: 20110923, end: 20111026

REACTIONS (4)
  - PYREXIA [None]
  - ABDOMINAL INFECTION [None]
  - PAIN [None]
  - ANAEMIA [None]
